FAERS Safety Report 6004709-8 (Version None)
Quarter: 2008Q4

REPORT INFORMATION
  Report Type: 
  Country: None (occurrence: None)
  Receive Date: 20081216
  Receipt Date: 20081211
  Transmission Date: 20090506
  Serious: Yes (Other)
  Sender: FDA-Public Use
  Company Number: US-ROXANE LABORATORIES, INC.-2008-RO-00401RO

PATIENT
  Age: 19 Year
  Sex: Female

DRUGS (6)
  1. FLUTICASONE PROPIONATE [Suspect]
     Indication: EOSINOPHILIC OESOPHAGITIS
     Route: 055
  2. FLUTICASONE PROPIONATE [Suspect]
  3. FLUTICASONE PROPIONATE [Suspect]
  4. PANTOPRAZOLE SODIUM [Suspect]
     Indication: EOSINOPHILIC OESOPHAGITIS
     Dosage: 40MG
  5. FLUCONAZOLE [Concomitant]
     Indication: HERPES OESOPHAGITIS
     Dosage: 100MG
  6. VALACYCLOVIR HCL [Concomitant]
     Indication: HERPES OESOPHAGITIS

REACTIONS (1)
  - HERPES OESOPHAGITIS [None]
